FAERS Safety Report 7543526-4 (Version None)
Quarter: 2011Q2

REPORT INFORMATION
  Report Type: 
  Country: None (occurrence: None)
  Receive Date: 20110613
  Receipt Date: 20011001
  Transmission Date: 20111010
  Serious: Yes (Death)
  Sender: FDA-Public Use
  Company Number: PHBS2001VE13574

PATIENT
  Age: 61 Year
  Sex: Male

DRUGS (1)
  1. STARLIX [Suspect]
     Dosage: 120 MG, UNK

REACTIONS (1)
  - RESPIRATORY ARREST [None]
